FAERS Safety Report 23626743 (Version 1)
Quarter: 2024Q1

REPORT INFORMATION
  Report Type: Spontaneous
  Country: US (occurrence: US)
  Receive Date: 20240313
  Receipt Date: 20240313
  Transmission Date: 20240410
  Serious: No
  Sender: FDA-Public Use
  Company Number: US-PFIZER INC-202400061568

PATIENT
  Age: 55 Year
  Sex: Female

DRUGS (1)
  1. IBRANCE [Suspect]
     Active Substance: PALBOCICLIB
     Indication: Breast cancer female
     Dosage: ONCE DAILY, 3 WEEKS ON 1 WEEK OFF
     Route: 048
     Dates: start: 20240225

REACTIONS (2)
  - Arthralgia [Not Recovered/Not Resolved]
  - Jarisch-Herxheimer reaction [Unknown]

NARRATIVE: CASE EVENT DATE: 20240301
